FAERS Safety Report 8792030 (Version 2)
Quarter: 2012Q4

REPORT INFORMATION
  Report Type: 
  Country: US (occurrence: US)
  Receive Date: 20120918
  Receipt Date: 20121008
  Transmission Date: 20130627
  Serious: No
  Sender: FDA-Public Use
  Company Number: US-VERTEX PHARMACEUTICAL INC.-AE-2012-011656

PATIENT
  Age: 59 None
  Sex: Male
  Weight: 76 kg

DRUGS (5)
  1. VX-950 [Suspect]
     Indication: HEPATITIS C
     Dosage: 750 mg, tid
     Route: 048
     Dates: start: 20120721
  2. PEGASYS [Concomitant]
     Indication: HEPATITIS C
     Dosage: 180 ?g, weekly
     Route: 058
     Dates: start: 20120721
  3. RIBAVIRIN [Concomitant]
     Indication: HEPATITIS C
     Dosage: 1000 mg, qd
     Route: 048
     Dates: start: 20120721
  4. VIAGRA [Concomitant]
     Dosage: UNK
     Dates: end: 20120818
  5. WELLBUTRIN [Concomitant]
     Dosage: 300 mg, qd

REACTIONS (12)
  - White blood cell count decreased [Not Recovered/Not Resolved]
  - Depression [Not Recovered/Not Resolved]
  - Photopsia [Recovered/Resolved]
  - Hypoaesthesia [Not Recovered/Not Resolved]
  - Vision blurred [Recovered/Resolved]
  - Burning sensation [Not Recovered/Not Resolved]
  - Irritability [Not Recovered/Not Resolved]
  - Pain in extremity [Not Recovered/Not Resolved]
  - Crying [Not Recovered/Not Resolved]
  - Vomiting [Unknown]
  - Pruritus generalised [Not Recovered/Not Resolved]
  - Platelet count decreased [Not Recovered/Not Resolved]
